FAERS Safety Report 6375991-2 (Version None)
Quarter: 2009Q3

REPORT INFORMATION
  Report Type: 
  Country: None (occurrence: None)
  Receive Date: 20090921
  Receipt Date: 20090909
  Transmission Date: 20100115
  Serious: Yes (Hospitalization)
  Sender: FDA-Public Use
  Company Number: 2009AP003650

PATIENT
  Age: 76 Year
  Sex: Female

DRUGS (11)
  1. ALENDRONATE SODIUM [Suspect]
     Indication: OSTEOPOROSIS PROPHYLAXIS
     Dosage: 70 MG; QW PO
     Route: 048
     Dates: end: 20090812
  2. NAPROXEN [Suspect]
     Indication: PAIN
     Dosage: 500 MG; BID PO, 250 MG; PO; BID
     Route: 048
     Dates: end: 20090730
  3. NAPROXEN [Suspect]
     Indication: PAIN
     Dosage: 500 MG; BID PO, 250 MG; PO; BID
     Route: 048
     Dates: start: 20090731, end: 20090812
  4. CALCIUM CARBONATE [Concomitant]
  5. COLECALCIFEROL (COLECALCIFEROL) [Concomitant]
  6. AMLODIPINE [Concomitant]
  7. BETAHISTINE (BETAHISTINE) [Concomitant]
  8. RANITIDINE [Concomitant]
  9. SIMVASTATIN [Concomitant]
  10. TRAMADOL HCL [Concomitant]
  11. ZOLPIDEM [Concomitant]

REACTIONS (2)
  - GASTRIC ULCER HAEMORRHAGE [None]
  - HAEMATEMESIS [None]
